FAERS Safety Report 4508369-4 (Version None)
Quarter: 2004Q4

REPORT INFORMATION
  Report Type: 
  Country: None (occurrence: None)
  Receive Date: 20041123
  Receipt Date: 20040120
  Transmission Date: 20050328
  Serious: No
  Sender: FDA-Public Use
  Company Number: US-GLAXOSMITHKLINE-A0494233A

PATIENT
  Age: 60 Year
  Sex: Female

DRUGS (6)
  1. WELLBUTRIN [Suspect]
     Indication: DEPRESSION
     Route: 048
  2. WELLBUTRIN [Suspect]
     Route: 048
     Dates: start: 20040117
  3. NEURONTIN [Concomitant]
  4. TRILEPTAL [Concomitant]
  5. KLONOPIN [Concomitant]
  6. UNSPECIFIED INHALER [Concomitant]

REACTIONS (10)
  - AGITATION [None]
  - ANOREXIA [None]
  - CRYING [None]
  - DIARRHOEA [None]
  - DRUG INEFFECTIVE [None]
  - HOT FLUSH [None]
  - MIGRAINE [None]
  - NERVOUSNESS [None]
  - VISION BLURRED [None]
  - WEIGHT DECREASED [None]
